FAERS Safety Report 15221243 (Version 1)
Quarter: 2018Q3

REPORT INFORMATION
  Report Type: Spontaneous
  Country: US (occurrence: US)
  Receive Date: 20180731
  Receipt Date: 20180731
  Transmission Date: 20181010
  Serious: No
  Sender: FDA-Public Use
  Company Number: US-PFIZER INC-2018305583

PATIENT
  Age: 24 Year
  Sex: Female

DRUGS (1)
  1. GENOTROPIN MQ [Suspect]
     Active Substance: SOMATROPIN
     Dosage: 0.8 MG, UNK, (0.8MG, 6 DAYS A WEEK)

REACTIONS (5)
  - Fatigue [Unknown]
  - Hypersomnia [Unknown]
  - Drug dose omission [Unknown]
  - Weight increased [Unknown]
  - Tremor [Unknown]
